FAERS Safety Report 8200662-7 (Version None)
Quarter: 2012Q1

REPORT INFORMATION
  Report Type: 
  Country: None (occurrence: None)
  Receive Date: 20120312
  Receipt Date: 20120228
  Transmission Date: 20120608
  Serious: Yes (Hospitalization)
  Sender: FDA-Public Use
  Company Number: IT-CELGENEUS-083-21880-12023077

PATIENT
  Sex: Female

DRUGS (5)
  1. ENOXAPARIN SODIUM [Concomitant]
     Route: 058
     Dates: start: 20110526, end: 20120215
  2. REVLIMID [Suspect]
     Indication: MULTIPLE MYELOMA
     Dosage: 15 MILLIGRAM
     Route: 048
     Dates: start: 20110526, end: 20111114
  3. DEXAMETHASONE [Concomitant]
     Route: 048
     Dates: start: 20110526, end: 20120215
  4. LIMPIDEX [Concomitant]
     Route: 048
     Dates: start: 20110526, end: 20120215
  5. LEVOTHYROXINE SODIUM [Concomitant]
     Route: 048

REACTIONS (4)
  - NAUSEA [None]
  - ASTHENIA [None]
  - GASTRIC CANCER [None]
  - VOMITING [None]
